FAERS Safety Report 16750120 (Version 1)
Quarter: 2019Q4

REPORT INFORMATION
  Report Type: Spontaneous
  Country: US (occurrence: US)
  Receive Date: 20190827
  Receipt Date: 20190827
  Transmission Date: 20200122
  Serious: Yes (Hospitalization)
  Sender: FDA-Public Use
  Company Number: None

PATIENT
  Age: 15 Year
  Sex: Male

DRUGS (6)
  1. FOCALIN 400MG [Concomitant]
  2. OXCARBAZEPINE 600MG [Concomitant]
  3. EPIDIOLEX [Suspect]
     Active Substance: CANNABIDIOL
     Indication: SEIZURE
     Route: 048
     Dates: start: 20190508
  4. CARBAMAZEPAM 200MG [Concomitant]
  5. KLONOPIN 0.5MG [Concomitant]
  6. ONFI 20MG [Concomitant]

REACTIONS (1)
  - Acute encephalitis with refractory, repetitive partial seizures [None]

NARRATIVE: CASE EVENT DATE: 20190819
